FAERS Safety Report 10168929 (Version 1)
Quarter: 2014Q2

REPORT INFORMATION
  Report Type: Report from Study
  Country: IL (occurrence: IL)
  Receive Date: 20140513
  Receipt Date: 20140513
  Transmission Date: 20141212
  Serious: Yes (Hospitalization)
  Sender: FDA-Public Use
  Company Number: IL-JNJFOC-20140504369

PATIENT
  Age: 86 Year
  Sex: Female
  Weight: 81 kg

DRUGS (11)
  1. RIVAROXABAN [Suspect]
     Indication: THROMBOSIS PROPHYLAXIS
     Route: 048
     Dates: start: 20130903, end: 20130924
  2. RIVAROXABAN [Suspect]
     Indication: THROMBOSIS PROPHYLAXIS
     Route: 048
     Dates: start: 20130924, end: 20140209
  3. RIVAROXABAN [Suspect]
     Indication: DEEP VEIN THROMBOSIS
     Route: 048
     Dates: start: 20130903, end: 20130924
  4. RIVAROXABAN [Suspect]
     Indication: DEEP VEIN THROMBOSIS
     Route: 048
     Dates: start: 20130924, end: 20140209
  5. METFORMIN [Concomitant]
     Route: 065
     Dates: end: 20130901
  6. HEPARIN [Concomitant]
     Indication: DEEP VEIN THROMBOSIS
     Route: 065
     Dates: start: 20130901, end: 20130902
  7. DISOTHIAZIDE [Concomitant]
     Route: 065
  8. AMLODIPINE [Concomitant]
     Route: 065
     Dates: start: 20130901
  9. INSULIN [Concomitant]
     Route: 065
     Dates: start: 20130901
  10. ATENOLOL [Concomitant]
     Route: 065
     Dates: start: 200009
  11. ENALAPRIL [Concomitant]
     Route: 065
     Dates: end: 20130901

REACTIONS (1)
  - Anaemia [Recovered/Resolved]
